FAERS Safety Report 9890491 (Version 1)
Quarter: 2014Q1

REPORT INFORMATION
  Report Type: Spontaneous
  Country: US (occurrence: None)
  Receive Date: 20140210
  Receipt Date: 20140210
  Transmission Date: 20141002
  Serious: Yes (Hospitalization)
  Sender: FDA-Public Use
  Company Number: None

PATIENT
  Age: 45 Year
  Sex: Male
  Weight: 90.3 kg

DRUGS (2)
  1. AMLODIPINE [Suspect]
     Indication: HYPERTENSION
     Route: 048
     Dates: start: 20110208, end: 20131218
  2. TRAZODONE [Suspect]
     Indication: INSOMNIA
     Route: 048
     Dates: start: 20130409, end: 20131218

REACTIONS (7)
  - Head injury [None]
  - Vision blurred [None]
  - Headache [None]
  - Syncope [None]
  - Blood pressure systolic increased [None]
  - Heart rate increased [None]
  - Orthostatic hypotension [None]
